FAERS Safety Report 25851338 (Version 1)
Quarter: 2025Q3

REPORT INFORMATION
  Report Type: Spontaneous
  Country: EU (occurrence: EU)
  Receive Date: 20250926
  Receipt Date: 20250926
  Transmission Date: 20251021
  Serious: Yes (Hospitalization)
  Sender: BAUSCH AND LOMB
  Company Number: None

PATIENT
  Age: 76 Year
  Sex: Male
  Weight: 96 kg

DRUGS (18)
  1. DEXAMETHASONE [Suspect]
     Active Substance: DEXAMETHASONE
     Indication: Anaesthesia
     Route: 042
     Dates: start: 20250827, end: 20250827
  2. DEXAMETHASONE [Suspect]
     Active Substance: DEXAMETHASONE
     Route: 042
  3. TRAMADOL HYDROCHLORIDE [Suspect]
     Active Substance: TRAMADOL HYDROCHLORIDE
     Indication: Anaesthesia
     Route: 042
     Dates: start: 20250827, end: 20250827
  4. TRAMADOL HYDROCHLORIDE [Suspect]
     Active Substance: TRAMADOL HYDROCHLORIDE
     Route: 042
  5. VISIPAQUE [Suspect]
     Active Substance: IODIXANOL
     Indication: Portal vein embolisation
     Route: 042
     Dates: start: 20250827, end: 20250827
  6. VISIPAQUE [Suspect]
     Active Substance: IODIXANOL
     Route: 042
  7. LIPIODOL [Suspect]
     Active Substance: ETHIODIZED OIL
     Indication: Portal vein embolisation
     Route: 042
     Dates: start: 20250827, end: 20250827
  8. LIPIODOL [Suspect]
     Active Substance: ETHIODIZED OIL
     Route: 042
  9. KETOPROFEN [Suspect]
     Active Substance: KETOPROFEN
     Indication: Anaesthesia
     Route: 042
     Dates: start: 20250827, end: 20250827
  10. KETOPROFEN [Suspect]
     Active Substance: KETOPROFEN
     Route: 042
  11. SUFENTANIL CITRATE [Suspect]
     Active Substance: SUFENTANIL CITRATE
     Indication: Anaesthesia
     Route: 042
     Dates: start: 20250827, end: 20250827
  12. SUFENTANIL CITRATE [Suspect]
     Active Substance: SUFENTANIL CITRATE
     Route: 042
  13. ACETAMINOPHEN [Suspect]
     Active Substance: ACETAMINOPHEN
     Indication: Anaesthesia
     Route: 042
     Dates: start: 20250827, end: 20250827
  14. ACETAMINOPHEN [Suspect]
     Active Substance: ACETAMINOPHEN
     Route: 042
  15. ATRACURIUM [Suspect]
     Active Substance: ATRACURIUM
     Indication: Anaesthesia
     Route: 042
     Dates: start: 20250827, end: 20250827
  16. ATRACURIUM [Suspect]
     Active Substance: ATRACURIUM
     Route: 042
  17. PROPOFOL [Suspect]
     Active Substance: PROPOFOL
     Indication: Anaesthesia
     Route: 042
     Dates: start: 20250827, end: 20250827
  18. PROPOFOL [Suspect]
     Active Substance: PROPOFOL
     Route: 042

REACTIONS (1)
  - Drug reaction with eosinophilia and systemic symptoms [Recovered/Resolved]

NARRATIVE: CASE EVENT DATE: 20250903
